FAERS Safety Report 5051653-9 (Version None)
Quarter: 2006Q3

REPORT INFORMATION
  Report Type: 
  Country: None (occurrence: None)
  Receive Date: 20060711
  Receipt Date: 20060626
  Transmission Date: 20061208
  Serious: Yes (Death)
  Sender: FDA-Public Use
  Company Number: 2006PV016389

PATIENT
  Age: 46 Year
  Sex: Male
  Weight: 163.2949 kg

DRUGS (8)
  1. BYETTA [Suspect]
     Indication: DIABETES MELLITUS NON-INSULIN-DEPENDENT
     Dosage: SEE IMAGE
     Route: 058
     Dates: start: 20060120, end: 20060217
  2. BYETTA [Suspect]
     Indication: DIABETES MELLITUS NON-INSULIN-DEPENDENT
     Dosage: SEE IMAGE
     Route: 058
     Dates: start: 20060217, end: 20060612
  3. FUROSEMIDE [Concomitant]
  4. GLUCOPHAGE [Concomitant]
  5. COLACE [Concomitant]
  6. NIASPAN [Concomitant]
  7. AVANDIA [Concomitant]
  8. LOVASTATIN [Concomitant]

REACTIONS (18)
  - ABNORMAL BEHAVIOUR [None]
  - APNOEA [None]
  - ARTHRALGIA [None]
  - CHILLS [None]
  - CYANOSIS [None]
  - DECREASED APPETITE [None]
  - FALL [None]
  - FATIGUE [None]
  - FEELING ABNORMAL [None]
  - GENERAL PHYSICAL HEALTH DETERIORATION [None]
  - HYPERHIDROSIS [None]
  - IMMOBILE [None]
  - LOSS OF CONSCIOUSNESS [None]
  - MYOCARDIAL INFARCTION [None]
  - OEDEMA PERIPHERAL [None]
  - PULSE ABSENT [None]
  - REFUSAL OF TREATMENT BY PATIENT [None]
  - WEIGHT DECREASED [None]
